FAERS Safety Report 7808276-5 (Version None)
Quarter: 2011Q4

REPORT INFORMATION
  Report Type: 
  Country: None (occurrence: None)
  Receive Date: 20111012
  Receipt Date: 20111004
  Transmission Date: 20120403
  Serious: Yes (Hospitalization, Other)
  Sender: FDA-Public Use
  Company Number: US-BIOGENIDEC-2011BI030081

PATIENT
  Age: 41 Year
  Sex: Female

DRUGS (1)
  1. AVONEX [Suspect]
     Indication: MULTIPLE SCLEROSIS
     Route: 030
     Dates: start: 20060407

REACTIONS (3)
  - EYE OPERATION [None]
  - CARDIAC NEOPLASM UNSPECIFIED [None]
  - MYASTHENIA GRAVIS [None]
